FAERS Safety Report 6376077-3 (Version None)
Quarter: 2009Q3

REPORT INFORMATION
  Report Type: 
  Country: None (occurrence: None)
  Receive Date: 20090918
  Receipt Date: 20090908
  Transmission Date: 20100115
  Serious: Yes (Other)
  Sender: FDA-Public Use
  Company Number: A20090712-002

PATIENT
  Age: 56 Year
  Sex: Female

DRUGS (1)
  1. LIVALO [Suspect]
     Indication: HYPERCHOLESTEROLAEMIA
     Dosage: 1MG PO
     Route: 048
     Dates: start: 20090715, end: 20090804

REACTIONS (3)
  - ARTHRALGIA [None]
  - DRY SKIN [None]
  - MALAISE [None]
